FAERS Safety Report 15677091 (Version 4)
Quarter: 2019Q2

REPORT INFORMATION
  Report Type: Spontaneous
  Country: US (occurrence: US)
  Receive Date: 20181130
  Receipt Date: 20190621
  Transmission Date: 20190711
  Serious: Yes (Hospitalization)
  Sender: FDA-Public Use
  Company Number: US-PFIZER INC-2018490704

PATIENT
  Age: 72 Year
  Sex: Female

DRUGS (5)
  1. ATORVASTATIN CALCIUM. [Suspect]
     Active Substance: ATORVASTATIN CALCIUM
     Indication: BLOOD CHOLESTEROL INCREASED
     Dosage: 20 MG, 1X/DAY
     Dates: start: 2012, end: 201209
  2. SYNTHROID [Concomitant]
     Active Substance: LEVOTHYROXINE SODIUM
     Dosage: UNK, 1X/DAY
     Dates: start: 19920927
  3. ATORVASTATIN CALCIUM. [Suspect]
     Active Substance: ATORVASTATIN CALCIUM
     Indication: MYOCARDIAL INFARCTION
     Dosage: 20 MG, 1X/DAY
     Dates: start: 201306, end: 201312
  4. RAMIPRIL. [Concomitant]
     Active Substance: RAMIPRIL
     Dosage: UNK, 1X/DAY
     Dates: start: 20020527
  5. ASPIRINE [Concomitant]
     Active Substance: ASPIRIN
     Dosage: UNK, 1X/DAY (325 1XDAY)
     Dates: start: 20020527

REACTIONS (13)
  - Decreased appetite [Recovered/Resolved]
  - Fatigue [Recovered/Resolved]
  - Reaction to excipient [Recovered/Resolved]
  - Panic attack [Recovered/Resolved]
  - Chills [Recovered/Resolved]
  - Visual impairment [Recovered/Resolved]
  - Accommodation disorder [Recovered/Resolved]
  - Urticaria [Recovered/Resolved]
  - Anxiety [Recovered/Resolved]
  - Cold sweat [Recovered/Resolved]
  - Weight decreased [Recovered/Resolved]
  - Balance disorder [Recovered/Resolved]
  - Hypothyroidism [Recovered/Resolved]

NARRATIVE: CASE EVENT DATE: 201208
